FAERS Safety Report 11054791 (Version 1)
Quarter: 2015Q2

REPORT INFORMATION
  Report Type: Spontaneous
  Country: US (occurrence: None)
  Receive Date: 20150421
  Receipt Date: 20150421
  Transmission Date: 20150821
  Serious: Yes (Disabling, Other)
  Sender: FDA-Public Use
  Company Number: None

PATIENT
  Age: 79 Year
  Sex: Female
  Weight: 71.22 kg

DRUGS (23)
  1. ATORVASTATIN [Concomitant]
     Active Substance: ATORVASTATIN
  2. NATURE-THROID [Concomitant]
     Active Substance: THYROID, PORCINE
  3. MILK THISTLE [Concomitant]
     Active Substance: MILK THISTLE
  4. POTASSIUM [Concomitant]
     Active Substance: POTASSIUM
  5. CARVEDILOL. [Concomitant]
     Active Substance: CARVEDILOL
  6. LOSARTAN [Concomitant]
     Active Substance: LOSARTAN
  7. FUROSEMIDE. [Concomitant]
     Active Substance: FUROSEMIDE
  8. DHEA [Concomitant]
     Active Substance: DEHYDROEPIANDROSTERONE-3-SULFATE SODIUM
  9. VITAMIN D3 [Concomitant]
     Active Substance: CHOLECALCIFEROL
  10. OMEGA 3 [Concomitant]
     Active Substance: OMEGA-3 FATTY ACIDS
  11. BOOSTER [Concomitant]
  12. LEVOTHYROXINE [Suspect]
     Active Substance: LEVOTHYROXINE
     Indication: HYPOTHYROIDISM
     Dosage: 1 PILL ONCE A DAY BY MOUTH
     Route: 048
     Dates: start: 20101120, end: 20120511
  13. BIO-IMMUNOZYME FORTE [Concomitant]
  14. FOLIC ACID. [Concomitant]
     Active Substance: FOLIC ACID
  15. LOW DOSE ASPIRIN [Concomitant]
     Active Substance: ASPIRIN
  16. VITAMIN B6 [Concomitant]
     Active Substance: PYRIDOXINE HYDROCHLORIDE
  17. BRILINTA [Concomitant]
     Active Substance: TICAGRELOR
  18. VITAMIN B12 [Concomitant]
     Active Substance: CYANOCOBALAMIN
  19. COGNITEX [Concomitant]
  20. POTASSIUM CL ER [Concomitant]
  21. LEVETIRACETAM. [Concomitant]
     Active Substance: LEVETIRACETAM
  22. COQ10 [Concomitant]
     Active Substance: UBIDECARENONE
  23. MELATONIN [Concomitant]
     Active Substance: MELATONIN

REACTIONS (3)
  - Seizure [None]
  - Blood glucose increased [None]
  - Myocardial infarction [None]

NARRATIVE: CASE EVENT DATE: 2011
